FAERS Safety Report 6421623-4 (Version None)
Quarter: 2009Q4

REPORT INFORMATION
  Report Type: 
  Country: None (occurrence: None)
  Receive Date: 20091030
  Receipt Date: 20091020
  Transmission Date: 20100525
  Serious: Yes (Death)
  Sender: FDA-Public Use
  Company Number: GB-JNJFOC-20091007588

PATIENT
  Age: 62 Year
  Sex: Male

DRUGS (1)
  1. REMICADE [Suspect]
     Indication: ERDHEIM-CHESTER DISEASE
     Route: 042

REACTIONS (1)
  - LISTERIOSIS [None]
